FAERS Safety Report 13385066 (Version 1)
Quarter: 2017Q1

REPORT INFORMATION
  Report Type: Spontaneous
  Country: US (occurrence: US)
  Receive Date: 20170329
  Receipt Date: 20170329
  Transmission Date: 20170429
  Serious: No
  Sender: FDA-Public Use
  Company Number: US-IMPAX LABORATORIES, INC-2017-IPXL-00483

PATIENT
  Age: 84 Year
  Sex: Male
  Weight: 57 kg

DRUGS (2)
  1. GLYBURIDE + METFORMIN [Suspect]
     Active Substance: GLYBURIDE\METFORMIN HYDROCHLORIDE
     Indication: DIABETES MELLITUS
     Dosage: 5/500, BID
     Route: 048
     Dates: start: 2017, end: 2017
  2. LIPITOR [Concomitant]
     Active Substance: ATORVASTATIN CALCIUM
     Indication: BLOOD CHOLESTEROL ABNORMAL
     Dosage: 5 MG, UNK
     Route: 065

REACTIONS (1)
  - Balance disorder [Recovered/Resolved]

NARRATIVE: CASE EVENT DATE: 2017
